FAERS Safety Report 8984858 (Version 1)
Quarter: 2012Q4

REPORT INFORMATION
  Report Type: 
  Country: US (occurrence: US)
  Receive Date: 20121226
  Receipt Date: 20121226
  Transmission Date: 20130627
  Serious: No
  Sender: FDA-Public Use
  Company Number: US-TEVA-377091USA

PATIENT
  Sex: Female

DRUGS (2)
  1. PROAIR HFA [Suspect]
     Dosage: QID
     Dates: start: 20121217, end: 20121219
  2. CARBAMAZEPINE [Concomitant]

REACTIONS (2)
  - Psychomotor hyperactivity [Unknown]
  - Nervousness [Unknown]
